FAERS Safety Report 6252290-0 (Version None)
Quarter: 2009Q3

REPORT INFORMATION
  Report Type: 
  Country: None (occurrence: None)
  Receive Date: 20090701
  Receipt Date: 20090625
  Transmission Date: 20100115
  Serious: Yes (Life-Threatening)
  Sender: FDA-Public Use
  Company Number: JP-ASTRAZENECA-2009SE02556

PATIENT
  Age: 68 Year
  Sex: Female

DRUGS (5)
  1. IRESSA [Suspect]
     Indication: LUNG ADENOCARCINOMA
     Route: 048
     Dates: start: 20090521, end: 20090610
  2. DECADRON [Concomitant]
     Route: 048
     Dates: start: 20090408, end: 20090610
  3. PARIET [Concomitant]
     Route: 048
     Dates: start: 20090402
  4. CARBOPLATIN [Concomitant]
  5. TAXOTERE [Concomitant]

REACTIONS (1)
  - LUNG DISORDER [None]
